FAERS Safety Report 15837400 (Version 2)
Quarter: 2019Q1

REPORT INFORMATION
  Report Type: Spontaneous
  Country: US (occurrence: US)
  Receive Date: 20190117
  Receipt Date: 20190218
  Transmission Date: 20190417
  Serious: Yes (Other)
  Sender: FDA-Public Use
  Company Number: US-BAYER-2019-009155

PATIENT
  Age: 44 Year
  Sex: Female
  Weight: 94 kg

DRUGS (3)
  1. MIRENA [Suspect]
     Active Substance: LEVONORGESTREL
     Indication: HAEMOPHILIA
  2. MIRENA [Suspect]
     Active Substance: LEVONORGESTREL
     Indication: INTRA-UTERINE CONTRACEPTIVE DEVICE
  3. MIRENA [Suspect]
     Active Substance: LEVONORGESTREL
     Indication: HAEMOPHILIA
     Dosage: 20 MCG/24HR, CONT
     Route: 015
     Dates: start: 20171017, end: 20190116

REACTIONS (3)
  - Abdominal pain [Recovered/Resolved]
  - Device dislocation [Recovered/Resolved]
  - Menorrhagia [Recovered/Resolved]
